FAERS Safety Report 7933160-6 (Version None)
Quarter: 2011Q4

REPORT INFORMATION
  Report Type: 
  Country: None (occurrence: None)
  Receive Date: 20111122
  Receipt Date: 20111116
  Transmission Date: 20120403
  Serious: Yes (Hospitalization, Other)
  Sender: FDA-Public Use
  Company Number: JP-ABBOTT-11P-087-0707000-00

PATIENT
  Sex: Female
  Weight: 58.1 kg

DRUGS (9)
  1. HUMIRA [Suspect]
     Dates: start: 20101126, end: 20110121
  2. METHOTREXATE [Suspect]
     Dosage: 8 MG/WEEK
     Dates: start: 20100415, end: 20110223
  3. FOLIC ACID [Concomitant]
     Indication: PROPHYLAXIS
     Route: 048
     Dates: start: 20101128, end: 20110225
  4. HUMIRA [Suspect]
     Dates: end: 20101112
  5. METHOTREXATE [Suspect]
     Indication: PRODUCT USED FOR UNKNOWN INDICATION
     Dosage: 6 MG/WEEK
     Dates: start: 20091126, end: 20100414
  6. FOLIC ACID [Concomitant]
     Indication: ADVERSE DRUG REACTION
  7. OMEPRAZOLE [Concomitant]
     Indication: PROPHYLAXIS AGAINST GASTROINTESTINAL ULCER
     Route: 048
     Dates: start: 20091024
  8. HUMIRA [Suspect]
     Indication: RHEUMATOID ARTHRITIS
     Route: 058
     Dates: start: 20091126
  9. MELOXICAM [Concomitant]
     Indication: RHEUMATOID ARTHRITIS
     Route: 048
     Dates: start: 20090925

REACTIONS (5)
  - SCAR [None]
  - SKIN MASS [None]
  - LIP AND/OR ORAL CAVITY CANCER [None]
  - PARANASAL SINUS NEOPLASM [None]
  - ERYTHEMA [None]
